FAERS Safety Report 5426112-1 (Version None)
Quarter: 2007Q3

REPORT INFORMATION
  Report Type: 
  Country: None (occurrence: None)
  Receive Date: 20070823
  Receipt Date: 20070814
  Transmission Date: 20080115
  Serious: Yes (Hospitalization, Other)
  Sender: FDA-Public Use
  Company Number: 2007AL003296

PATIENT
  Sex: 0

DRUGS (3)
  1. RANITIDINE [Suspect]
     Indication: FEEDING TUBE COMPLICATION
     Dosage: GT
  2. RANITIDINE [Suspect]
     Indication: FOOD INTOLERANCE
     Dosage: GT
  3. RANITIDINE [Suspect]
     Indication: HAEMORRHAGE
     Dosage: GT

REACTIONS (1)
  - SEPSIS NEONATAL [None]
